FAERS Safety Report 6284823-2 (Version None)
Quarter: 2009Q3

REPORT INFORMATION
  Report Type: 
  Country: None (occurrence: None)
  Receive Date: 20090727
  Receipt Date: 20090720
  Transmission Date: 20100115
  Serious: Yes (Death, Life-Threatening, Congenital Anomaly, Other)
  Sender: FDA-Public Use
  Company Number: US-ROXANE LABORATORIES, INC.-2009-RO-00726RO

PATIENT
  Sex: Female
  Weight: 2 kg

DRUGS (9)
  1. MYCOPHENOLATE MOFETIL [Suspect]
     Indication: DRUG EXPOSURE DURING PREGNANCY
     Route: 064
  2. PREDNISONE TAB [Suspect]
     Indication: DRUG EXPOSURE DURING PREGNANCY
     Route: 064
  3. TACROLIMUS [Suspect]
     Indication: DRUG EXPOSURE DURING PREGNANCY
     Route: 064
  4. NORVASC [Suspect]
     Indication: DRUG EXPOSURE DURING PREGNANCY
     Route: 064
  5. METOPROLOL SUCCINATE [Suspect]
     Indication: DRUG EXPOSURE DURING PREGNANCY
     Route: 064
  6. LASIX [Suspect]
     Indication: DRUG EXPOSURE DURING PREGNANCY
     Route: 064
  7. EPOGEN [Suspect]
     Indication: DRUG EXPOSURE DURING PREGNANCY
     Route: 064
  8. VITAMIN TAB [Suspect]
     Indication: DRUG EXPOSURE DURING PREGNANCY
     Route: 064
  9. ACYCLOVIR [Suspect]
     Indication: DRUG EXPOSURE DURING PREGNANCY
     Route: 064

REACTIONS (25)
  - ATRIAL SEPTAL DEFECT [None]
  - BLADDER DISORDER [None]
  - BRAIN MALFORMATION [None]
  - CLEFT PALATE [None]
  - CONGENITAL DIAPHRAGMATIC HERNIA [None]
  - FINGER HYPOPLASIA [None]
  - HYPERTELORISM OF ORBIT [None]
  - INTRAVENTRICULAR HAEMORRHAGE NEONATAL [None]
  - IRIS HYPOPIGMENTATION [None]
  - MICROTIA [None]
  - NAIL DISORDER [None]
  - NIPPLE DISORDER [None]
  - NOSE DEFORMITY [None]
  - OESOPHAGEAL ATRESIA [None]
  - PTERYGIUM COLLI [None]
  - PULMONARY HYPERTENSION [None]
  - PULMONARY HYPOPLASIA [None]
  - PYELOCALIECTASIS [None]
  - RETROGNATHIA [None]
  - SINGLE UMBILICAL ARTERY [None]
  - SPINAL DISORDER [None]
  - SUBARACHNOID HAEMORRHAGE [None]
  - TRACHEO-OESOPHAGEAL FISTULA [None]
  - URETERIC DILATATION [None]
  - VENTRICULAR HYPOPLASIA [None]
